FAERS Safety Report 14092428 (Version 1)
Quarter: 2017Q4

REPORT INFORMATION
  Report Type: Spontaneous
  Country: IS (occurrence: IS)
  Receive Date: 20171016
  Receipt Date: 20171016
  Transmission Date: 20180321
  Serious: Yes (Other)
  Sender: FDA-Public Use
  Company Number: IS-TEVA-813138ISR

PATIENT
  Age: 60 Year
  Sex: Female
  Weight: 137 kg

DRUGS (1)
  1. ESOMEPRAZOL ACTAVIS 40 MG MAAGSAPRESISTENTE CAPSULE, HARD [Suspect]
     Active Substance: ESOMEPRAZOLE
     Dosage: 1 X 2
     Dates: start: 20121001, end: 20121101

REACTIONS (4)
  - Haematemesis [Recovered/Resolved]
  - Pain [Recovered/Resolved]
  - Vomiting [Recovered/Resolved]
  - Rash [Recovered/Resolved]

NARRATIVE: CASE EVENT DATE: 20121001
